FAERS Safety Report 6958185-9 (Version None)
Quarter: 2010Q3

REPORT INFORMATION
  Report Type: 
  Country: None (occurrence: None)
  Receive Date: 20100831
  Receipt Date: 20100830
  Transmission Date: 20110219
  Serious: Yes (Other)
  Sender: FDA-Public Use
  Company Number: A0878379A

PATIENT
  Age: 83 Year
  Sex: Female

DRUGS (3)
  1. WALGREENS NICOTINE TRANSDERMAL SYSTEM PATCH CLEAR, 21MG [Suspect]
     Indication: SMOKING CESSATION THERAPY
     Route: 062
     Dates: start: 20100711
  2. WALGREENS NICOTINE TRANSDERMAL SYSTEM PATCH CLEAR, 14MG [Suspect]
     Indication: SMOKING CESSATION THERAPY
     Route: 062
     Dates: start: 20100711
  3. ADVAIR DISKUS 100/50 [Suspect]
     Route: 055

REACTIONS (6)
  - ANAEMIA [None]
  - EXTRAVASATION BLOOD [None]
  - MOUTH HAEMORRHAGE [None]
  - OROPHARYNGEAL PAIN [None]
  - RASH [None]
  - THROAT IRRITATION [None]
